FAERS Safety Report 8578952-8 (Version None)
Quarter: 2012Q3

REPORT INFORMATION
  Report Type: 
  Country: None (occurrence: None)
  Receive Date: 20120726
  Receipt Date: 20120713
  Transmission Date: 20120928
  Serious: Yes (Hospitalization, Other)
  Sender: FDA-Public Use
  Company Number: 2012-000848

PATIENT
  Age: 65 Year
  Sex: Female
  Weight: 50.5 kg

DRUGS (31)
  1. FOSAMAX [Suspect]
     Dosage: UNK, UNKNOWN
     Dates: start: 20030430
  2. MIRALAX /00754501/ (MACROGOL) [Concomitant]
  3. VITAMIN E /00110501/ (TOCOPHEROL) [Concomitant]
  4. TIZANIDINE HCL [Concomitant]
  5. PLAQUENIL /00072602/ (HYDROXYCHLOROQUINE PHOSPHATE) [Concomitant]
  6. RESTORIL /00393701/ (TEMAZEPAM) [Concomitant]
  7. IMITREX /01044801/ (SUMATRIPTAN) [Concomitant]
  8. HYDROXYZINE HCL [Concomitant]
  9. CALCIUM MAGNESIUM (CALCIUM, MAGNESIUM) [Concomitant]
  10. CARAFATE [Concomitant]
  11. PREMARIN [Concomitant]
  12. GLUCOSAMINE (GLUCOSAMINE) [Concomitant]
  13. VITAMIN D [Concomitant]
  14. TRIAMTERENE AND HYDROCHLOROTHIAZIDE (HYDROCHLOROTHIAZIDE, TRIAMETERENE [Concomitant]
  15. WELLBUTRIN [Concomitant]
  16. TYLENOL (CAPLET) [Concomitant]
  17. ACTONEL [Suspect]
     Dosage: 35 MG ONCE WEEKLY, ORAL
     Route: 048
     Dates: start: 20040209, end: 20090401
  18. FENTANYL [Concomitant]
  19. NEURONTIN [Concomitant]
  20. CLONAZEPAM [Concomitant]
  21. ESTRATAB [Concomitant]
  22. LEXAPRO [Concomitant]
  23. LISINOPRIL [Concomitant]
  24. DICLOFENAC SODIUM [Concomitant]
  25. PREVACID [Concomitant]
  26. ULTRAM [Concomitant]
  27. MECLIZINE /00072801/ (MECLOZINE) [Concomitant]
  28. LORTAB [Concomitant]
  29. POTASSIUM /00031402/ (POTASSIUM CHLORIDE) [Concomitant]
  30. BONIVA [Suspect]
     Indication: OSTEOPENIA
     Dosage: 150 MG ONCE MONTHLY, UNKNOWN
     Dates: start: 20100726
  31. LYRICA [Concomitant]

REACTIONS (4)
  - ARTHRALGIA [None]
  - FEMUR FRACTURE [None]
  - QUALITY OF LIFE DECREASED [None]
  - PAIN IN EXTREMITY [None]
